FAERS Safety Report 6763899-X (Version None)
Quarter: 2010Q2

REPORT INFORMATION
  Report Type: 
  Country: None (occurrence: None)
  Receive Date: 20100608
  Receipt Date: 20100525
  Transmission Date: 20101027
  Serious: Yes (Hospitalization)
  Sender: FDA-Public Use
  Company Number: 2010PL000069

PATIENT
  Sex: Female

DRUGS (1)
  1. IMURAN [Suspect]
     Indication: RHEUMATOID ARTHRITIS
     Dosage: 100 MG;QD
     Dates: start: 20100205, end: 20100401

REACTIONS (8)
  - ASTHENIA [None]
  - CARDIAC DISORDER [None]
  - DEHYDRATION [None]
  - DYSPNOEA [None]
  - FALL [None]
  - HAEMOGLOBIN DECREASED [None]
  - HYPOTENSION [None]
  - PSORIASIS [None]
